FAERS Safety Report 10227352 (Version 6)
Quarter: 2015Q1

REPORT INFORMATION
  Report Type: Spontaneous
  Country: US (occurrence: US)
  Receive Date: 20140610
  Receipt Date: 20150107
  Transmission Date: 20150720
  Serious: No
  Sender: FDA-Public Use
  Company Number: US-PFIZER INC-2014155787

PATIENT
  Age: 72 Year
  Sex: Female

DRUGS (7)
  1. QVAR [Concomitant]
     Active Substance: BECLOMETHASONE DIPROPIONATE
     Dosage: UNK
     Route: 055
     Dates: start: 1995
  2. CALAN SR [Suspect]
     Active Substance: VERAPAMIL HYDROCHLORIDE
     Dosage: 120 MG (1/2 OF 240 MG), 2X/DAY
  3. PROVENTIL [Concomitant]
     Active Substance: ALBUTEROL
     Dosage: UNK
     Dates: start: 1987
  4. CALAN SR [Suspect]
     Active Substance: VERAPAMIL HYDROCHLORIDE
     Indication: HYPERTENSION
     Dosage: 120 MG, 2X/DAY
     Dates: start: 201305
  5. CALAN SR [Suspect]
     Active Substance: VERAPAMIL HYDROCHLORIDE
     Dosage: 180 MG, 2X/ DAY
  6. KLONOPIN [Concomitant]
     Active Substance: CLONAZEPAM
     Dosage: 0.25 MG, UNK (1/2 0.5 MG)
     Dates: start: 1987
  7. ZANTAC [Concomitant]
     Active Substance: RANITIDINE HYDROCHLORIDE
     Dosage: 150 MG, UNK
     Dates: start: 1998

REACTIONS (1)
  - Blood pressure inadequately controlled [Not Recovered/Not Resolved]
